FAERS Safety Report 12114650 (Version 2)
Quarter: 2016Q1

REPORT INFORMATION
  Report Type: Spontaneous
  Country: US (occurrence: US)
  Receive Date: 20160225
  Receipt Date: 20160301
  Transmission Date: 20160526
  Serious: Yes (Hospitalization)
  Sender: FDA-Public Use
  Company Number: US-UNITED THERAPEUTICS-UNT-2016-002617

PATIENT
  Age: 79 Year
  Sex: Female
  Weight: 68.27 kg

DRUGS (1)
  1. REMODULIN [Suspect]
     Active Substance: TREPROSTINIL
     Indication: PULMONARY ARTERIAL HYPERTENSION
     Dosage: 0.040 ?G/KG, CONTINUING
     Route: 041
     Dates: start: 20141118

REACTIONS (3)
  - Drug dose omission [Unknown]
  - Device dislocation [Unknown]
  - Hypotension [Unknown]

NARRATIVE: CASE EVENT DATE: 201602
